FAERS Safety Report 19537706 (Version 1)
Quarter: 2021Q3

REPORT INFORMATION
  Report Type: Spontaneous
  Country: US (occurrence: US)
  Receive Date: 20210713
  Receipt Date: 20210713
  Transmission Date: 20211014
  Serious: No
  Sender: FDA-Public Use
  Company Number: US-SA-2021SA226263

PATIENT
  Sex: Male

DRUGS (1)
  1. DUPIXENT [Suspect]
     Active Substance: DUPILUMAB
     Indication: PSORIASIS
     Dosage: 300 MG, QOW
     Route: 058
     Dates: start: 202004

REACTIONS (5)
  - Skin burning sensation [Unknown]
  - Product use in unapproved indication [Unknown]
  - Skin disorder [Unknown]
  - Erythema [Unknown]
  - Pruritus [Unknown]
